FAERS Safety Report 16428160 (Version 1)
Quarter: 2019Q2

REPORT INFORMATION
  Report Type: Spontaneous
  Country: CA (occurrence: CA)
  Receive Date: 20190613
  Receipt Date: 20190613
  Transmission Date: 20190711
  Serious: Yes (Hospitalization, Disabling, Other)
  Sender: FDA-Public Use
  Company Number: CA-009507513-2008-179057-NL

PATIENT
  Age: 28 Year
  Sex: Female

DRUGS (2)
  1. PUREGON (FOLLITROPIN BETA) [Suspect]
     Active Substance: FOLLITROPIN
  2. PREGNYL [Suspect]
     Active Substance: CHORIOGONADOTROPIN ALFA
     Indication: IN VITRO FERTILISATION
     Dosage: UNK INTERNATIONAL UNIT, ONCE

REACTIONS (7)
  - Cerebral artery occlusion [Unknown]
  - Dysarthria [Recovering/Resolving]
  - Somnolence [Recovered/Resolved]
  - Pleural effusion [Recovered/Resolved]
  - Hemiplegia [Recovering/Resolving]
  - Ovarian hyperstimulation syndrome [Recovered/Resolved]
  - Facial paralysis [Recovered/Resolved]
